FAERS Safety Report 14955544 (Version 1)
Quarter: 2018Q2

REPORT INFORMATION
  Report Type: Spontaneous
  Country: US (occurrence: US)
  Receive Date: 20180531
  Receipt Date: 20180531
  Transmission Date: 20180711
  Serious: No
  Sender: FDA-Public Use
  Company Number: US-SA-2018SA136861

PATIENT
  Age: 61 Year
  Sex: Female

DRUGS (1)
  1. GOLD BOND ULTIMATE ECZEMA RELIEF [Suspect]
     Active Substance: OATMEAL
     Indication: ECZEMA
     Dosage: UNK UNK,UNK
     Route: 065

REACTIONS (3)
  - Eczema [Unknown]
  - Skin exfoliation [Unknown]
  - Pain [Unknown]

NARRATIVE: CASE EVENT DATE: 20180507
